FAERS Safety Report 8887797 (Version 2)
Quarter: 2013Q1

REPORT INFORMATION
  Report Type: Spontaneous
  Country: JP (occurrence: JP)
  Receive Date: 20121106
  Receipt Date: 20130130
  Transmission Date: 20140127
  Serious: Yes (Hospitalization)
  Sender: FDA-Public Use
  Company Number: JP-ELI_LILLY_AND_COMPANY-JP201208009289

PATIENT
  Age: 75 Year
  Sex: Female

DRUGS (3)
  1. FORTEO [Suspect]
     Dosage: UNK
     Route: 058
     Dates: end: 201209
  2. FORTEO [Suspect]
     Dosage: UNK
     Route: 058
     Dates: start: 201209
  3. ANTIHYPERTENSIVES [Concomitant]
     Route: 048

REACTIONS (6)
  - Eczema [Unknown]
  - Injection site bruising [Unknown]
  - Back pain [Recovered/Resolved]
  - Bone pain [Recovered/Resolved]
  - Neck pain [Recovered/Resolved]
  - Medication error [Unknown]
